FAERS Safety Report 7826653-3 (Version None)
Quarter: 2011Q4

REPORT INFORMATION
  Report Type: 
  Country: None (occurrence: None)
  Receive Date: 20111020
  Receipt Date: 20111011
  Transmission Date: 20120403
  Serious: Yes (Death, Life-Threatening, Hospitalization)
  Sender: FDA-Public Use
  Company Number: DE-JNJFOC-20111004222

PATIENT
  Sex: Female
  Weight: 100 kg

DRUGS (6)
  1. VALPROATE SODIUM [Concomitant]
     Route: 065
  2. DIAZEPAM [Concomitant]
     Route: 065
  3. PALIPERIDONE [Suspect]
     Indication: SCHIZOPHRENIA
     Route: 030
     Dates: start: 20110905
  4. PREDNISOLONE [Concomitant]
     Route: 065
  5. CEFUROXIME [Concomitant]
     Route: 065
  6. VENLAFAXINE HYDROCHLORIDE [Concomitant]
     Route: 065

REACTIONS (15)
  - MULTI-ORGAN FAILURE [None]
  - LIVER FUNCTION TEST ABNORMAL [None]
  - CONVULSION [None]
  - DISORIENTATION [None]
  - HYPERLIPIDAEMIA [None]
  - SINUS TACHYCARDIA [None]
  - ANAEMIA [None]
  - HYPERTENSION [None]
  - SEPSIS [None]
  - LUNG DISORDER [None]
  - METABOLIC ACIDOSIS [None]
  - OBESITY [None]
  - CHRONIC OBSTRUCTIVE PULMONARY DISEASE [None]
  - TROPONIN INCREASED [None]
  - THROMBOCYTOPENIA [None]
